FAERS Safety Report 11813306 (Version 1)
Quarter: 2015Q4

REPORT INFORMATION
  Report Type: Spontaneous
  Country: US (occurrence: None)
  Receive Date: 20151208
  Receipt Date: 20151208
  Transmission Date: 20160305
  Serious: Yes (Hospitalization)
  Sender: FDA-Public Use
  Company Number: None

PATIENT
  Age: 85 Year
  Sex: Female
  Weight: 71.1 kg

DRUGS (14)
  1. APAP [Concomitant]
     Active Substance: ACETAMINOPHEN
  2. COLACE [Concomitant]
     Active Substance: DOCUSATE SODIUM
  3. CAPS MV [Concomitant]
  4. IBUPROFEN. [Suspect]
     Active Substance: IBUPROFEN
     Indication: ARTHRALGIA
     Dosage: 400 MG, Q6HRS PRN CHRONIC
     Route: 048
  5. ANUSOL HC [Concomitant]
     Active Substance: HYDROCORTISONE
  6. PRAVACHOL [Concomitant]
     Active Substance: PRAVASTATIN SODIUM
  7. ECOTRIN [Suspect]
     Active Substance: ASPIRIN
     Indication: AORTIC STENOSIS
     Dosage: CHRONIC
     Route: 048
  8. MVI [Concomitant]
     Active Substance: VITAMINS
  9. CA CARBONATE [Concomitant]
  10. ROBITUSSIN (GUAIFENESIN) [Concomitant]
     Active Substance: GUAIFENESIN
  11. MIRALAX [Concomitant]
     Active Substance: POLYETHYLENE GLYCOL 3350
  12. CLARITIN [Concomitant]
     Active Substance: LORATADINE
  13. HYZAAR [Concomitant]
     Active Substance: HYDROCHLOROTHIAZIDE\LOSARTAN POTASSIUM
  14. TOPROL XL [Concomitant]
     Active Substance: METOPROLOL SUCCINATE

REACTIONS (6)
  - Hiatus hernia [None]
  - Chills [None]
  - Duodenal ulcer [None]
  - Melaena [None]
  - Gastrointestinal haemorrhage [None]
  - Haemorrhagic anaemia [None]

NARRATIVE: CASE EVENT DATE: 20150318
